FAERS Safety Report 7800146-1 (Version None)
Quarter: 2011Q4

REPORT INFORMATION
  Report Type: 
  Country: None (occurrence: None)
  Receive Date: 20111006
  Receipt Date: 20111004
  Transmission Date: 20120403
  Serious: Yes (Other)
  Sender: FDA-Public Use
  Company Number: US-MERCK-0706USA00452

PATIENT
  Age: 50 Year
  Sex: Female
  Weight: 69 kg

DRUGS (5)
  1. FOSAMAX [Suspect]
     Indication: OSTEOPENIA
     Route: 048
     Dates: start: 20060113, end: 20060710
  2. TRAZODONE HYDROCHLORIDE [Concomitant]
     Indication: PAIN
     Route: 065
     Dates: start: 19930101
  3. XANAX [Concomitant]
     Indication: PANIC DISORDER
     Route: 065
     Dates: start: 19970101
  4. ABILIFY [Concomitant]
     Indication: DEPRESSION
     Route: 065
     Dates: start: 20000101
  5. PAXIL [Concomitant]
     Indication: ANXIETY
     Route: 065
     Dates: start: 20030101

REACTIONS (23)
  - NEOPLASM MALIGNANT [None]
  - BONE LOSS [None]
  - FALL [None]
  - LACERATION [None]
  - OSTEONECROSIS OF JAW [None]
  - BONE FRAGMENTATION [None]
  - TOOTH LOSS [None]
  - MUSCLE STRAIN [None]
  - NECK INJURY [None]
  - BREAST PAIN [None]
  - ALVEOLAR OSTEITIS [None]
  - CERUMEN IMPACTION [None]
  - EXOSTOSIS [None]
  - CHEST PAIN [None]
  - INFECTION [None]
  - DIZZINESS [None]
  - TOOTHACHE [None]
  - ORAL PAIN [None]
  - CONTUSION [None]
  - LYMPHADENOPATHY [None]
  - NEOPLASM [None]
  - DRUG HYPERSENSITIVITY [None]
  - INSOMNIA [None]
